FAERS Safety Report 7364724-9 (Version None)
Quarter: 2011Q1

REPORT INFORMATION
  Report Type: 
  Country: None (occurrence: None)
  Receive Date: 20110321
  Receipt Date: 20110316
  Transmission Date: 20110831
  Serious: No
  Sender: FDA-Public Use
  Company Number: DE-B.I. PHARMACEUTICALS,INC./RIDGEFIELD-2011-DE-01681DE

PATIENT
  Sex: Male

DRUGS (2)
  1. VIRAMUNE [Suspect]
     Indication: HIV INFECTION
     Dosage: 1-0-1
     Dates: start: 20080828
  2. TRUVADA [Concomitant]
     Indication: HIV INFECTION

REACTIONS (4)
  - CARDIOVASCULAR DISORDER [None]
  - H1N1 INFLUENZA [None]
  - ANXIETY DISORDER [None]
  - SCIATICA [None]
